FAERS Safety Report 20345542 (Version 1)
Quarter: 2022Q1

REPORT INFORMATION
  Report Type: Spontaneous
  Country: US (occurrence: None)
  Receive Date: 20220114
  Receipt Date: 20220114
  Transmission Date: 20220423
  Serious: Yes (Hospitalization, Other)
  Sender: FDA-Public Use
  Company Number: None

PATIENT
  Age: 52 Year
  Sex: Female
  Weight: 56.25 kg

DRUGS (14)
  1. AIMOVIG [Suspect]
     Active Substance: ERENUMAB-AOOE
     Indication: Migraine
     Dosage: OTHER ROUTE : INJECTED SUBCUTANEOUSLY INTO ABDOMEN;?
     Route: 058
  2. Tapazole/Methimazole [Concomitant]
  3. CYCLOBENZAPRINE [Concomitant]
     Active Substance: CYCLOBENZAPRINE
  4. TRAZODONE [Concomitant]
     Active Substance: TRAZODONE HYDROCHLORIDE
  5. PROGESTERONE [Concomitant]
     Active Substance: PROGESTERONE
  6. ESTRADIOL [Concomitant]
     Active Substance: ESTRADIOL
  7. NALTREXONE [Concomitant]
     Active Substance: NALTREXONE
  8. DIETARY SUPPLEMENT\HERBALS\INDIAN FRANKINCENSE [Concomitant]
     Active Substance: DIETARY SUPPLEMENT\HERBALS\INDIAN FRANKINCENSE
  9. MAGNESIUM CITRATE [Concomitant]
     Active Substance: MAGNESIUM CITRATE
  10. MAGNESIUM GLYCINATE [Concomitant]
     Active Substance: MAGNESIUM GLYCINATE
  11. B1 [Concomitant]
  12. B2 [Concomitant]
  13. ZYRTEC [Concomitant]
     Active Substance: CETIRIZINE HYDROCHLORIDE
  14. Bendaryl [Concomitant]

REACTIONS (6)
  - Constipation [None]
  - Gastrointestinal pain [None]
  - Nausea [None]
  - Mobility decreased [None]
  - Gait inability [None]
  - Abdominal distension [None]

NARRATIVE: CASE EVENT DATE: 20220104
